FAERS Safety Report 26123023 (Version 1)
Quarter: 2025Q4

REPORT INFORMATION
  Report Type: Spontaneous
  Country: EU (occurrence: EU)
  Receive Date: 20251204
  Receipt Date: 20251204
  Transmission Date: 20260117
  Serious: Yes (Other)
  Sender: PFIZER
  Company Number: EU-ABBVIE-6559508

PATIENT
  Age: 55 Year
  Sex: Male

DRUGS (6)
  1. RITUXIMAB [Suspect]
     Active Substance: RITUXIMAB
     Indication: Chronic lymphocytic leukaemia
     Dosage: UNK, CYCLIC
     Dates: start: 2022, end: 20240403
  2. VENETOCLAX [Suspect]
     Active Substance: VENETOCLAX
     Indication: Chronic lymphocytic leukaemia
     Dosage: UNK
     Route: 048
     Dates: start: 202203, end: 20240403
  3. RAMIPRIL [Concomitant]
     Active Substance: RAMIPRIL
     Dosage: 10 MG
  4. LACIDIPINE [Concomitant]
     Active Substance: LACIDIPINE
     Indication: Product used for unknown indication
     Dosage: 4 MG
  5. BISOPROLOL [Concomitant]
     Active Substance: BISOPROLOL
     Indication: Product used for unknown indication
     Dosage: 2.5 MG
  6. DOXAZOSIN [Concomitant]
     Active Substance: DOXAZOSIN MESYLATE
     Indication: Product used for unknown indication
     Dosage: 2 MG

REACTIONS (14)
  - Acute kidney injury [Unknown]
  - Neutrophil count decreased [Recovering/Resolving]
  - Febrile neutropenia [Unknown]
  - Lymphocyte count increased [Recovering/Resolving]
  - Upper respiratory tract infection [Unknown]
  - Blood creatinine increased [Unknown]
  - Pyrexia [Unknown]
  - Haemoglobin decreased [Recovering/Resolving]
  - C-reactive protein increased [Unknown]
  - Chills [Unknown]
  - Platelet count decreased [Unknown]
  - Diarrhoea [Unknown]
  - Oropharyngeal pain [Unknown]
  - Nausea [Unknown]

NARRATIVE: CASE EVENT DATE: 20220308
